FAERS Safety Report 5119909-9 (Version None)
Quarter: 2006Q3

REPORT INFORMATION
  Report Type: 
  Country: None (occurrence: None)
  Receive Date: 20060927
  Receipt Date: 20060920
  Transmission Date: 20061208
  Serious: Yes (Other)
  Sender: FDA-Public Use
  Company Number: GBWYE974820SEP06

PATIENT

DRUGS (1)
  1. EFFEXOR XR [Suspect]
     Dosage: 75MG FREQUENCY
     Dates: start: 20060701

REACTIONS (1)
  - ENCEPHALOPATHY [None]
